FAERS Safety Report 11629756 (Version 2)
Quarter: 2015Q4

REPORT INFORMATION
  Report Type: Spontaneous
  Country: AU (occurrence: AU)
  Receive Date: 20151014
  Receipt Date: 20151020
  Transmission Date: 20160304
  Serious: Yes (Other)
  Sender: FDA-Public Use
  Company Number: PHHY2015AU123199

PATIENT
  Sex: Female
  Weight: 2.5 kg

DRUGS (5)
  1. DIGOXIN. [Suspect]
     Active Substance: DIGOXIN
     Indication: FOETAL EXPOSURE DURING PREGNANCY
     Route: 064
  2. SALBUTAMOL [Suspect]
     Active Substance: ALBUTEROL
     Indication: FOETAL EXPOSURE DURING PREGNANCY
     Route: 064
  3. BISOPROLOL [Concomitant]
     Active Substance: BISOPROLOL
     Indication: FOETAL EXPOSURE DURING PREGNANCY
     Route: 064
  4. ALDACTONE [Concomitant]
     Active Substance: SPIRONOLACTONE
     Indication: FOETAL EXPOSURE DURING PREGNANCY
     Route: 064
  5. PERINDOPRIL [Concomitant]
     Active Substance: PERINDOPRIL
     Indication: FOETAL EXPOSURE DURING PREGNANCY
     Route: 064

REACTIONS (3)
  - Foetal exposure during pregnancy [Unknown]
  - Premature baby [Unknown]
  - Low birth weight baby [Unknown]
